FAERS Safety Report 5059386-X (Version None)
Quarter: 2006Q3

REPORT INFORMATION
  Report Type: 
  Country: None (occurrence: None)
  Receive Date: 20060724
  Receipt Date: 20050616
  Transmission Date: 20061208
  Serious: No
  Sender: FDA-Public Use
  Company Number: US-AMGEN-KDL139289

PATIENT
  Sex: Female
  Weight: 92.6 kg

DRUGS (1)
  1. PROCRIT [Suspect]
     Indication: ANAEMIA OF MALIGNANT DISEASE
     Dates: start: 20030801

REACTIONS (2)
  - INJECTION SITE BRUISING [None]
  - WEIGHT INCREASED [None]
